FAERS Safety Report 4354786-5 (Version None)
Quarter: 2004Q2

REPORT INFORMATION
  Report Type: 
  Country: None (occurrence: None)
  Receive Date: 20040507
  Receipt Date: 20040426
  Transmission Date: 20050107
  Serious: Yes (Hospitalization)
  Sender: FDA-Public Use
  Company Number: US-MERCK-0404USA02197

PATIENT
  Age: 68 Year
  Sex: Female
  Weight: 80 kg

DRUGS (9)
  1. FOSAMAX [Concomitant]
     Indication: OSTEOPOROSIS
     Route: 048
     Dates: start: 19980609
  2. ASPIRIN [Concomitant]
     Indication: PROPHYLAXIS
     Route: 048
     Dates: start: 19970101
  3. ATENOLOL [Concomitant]
     Route: 048
     Dates: start: 19981014
  4. ATENOLOL [Concomitant]
     Route: 048
     Dates: start: 19980828
  5. ATENOLOL [Concomitant]
     Route: 048
     Dates: start: 19980528
  6. ATENOLOL [Concomitant]
     Route: 048
     Dates: start: 19980617
  7. LIPITOR [Concomitant]
     Indication: HYPERLIPIDAEMIA
     Route: 048
     Dates: start: 19980101
  8. PEPCID [Suspect]
     Route: 048
     Dates: end: 19981009
  9. HYDROCHLOROTHIAZIDE [Concomitant]
     Route: 048

REACTIONS (5)
  - BLOOD AMYLASE INCREASED [None]
  - LIPASE INCREASED [None]
  - OEDEMA PERIPHERAL [None]
  - PANCREATITIS ACUTE [None]
  - STOMACH DISCOMFORT [None]
